FAERS Safety Report 20932337 (Version 1)
Quarter: 2022Q2

REPORT INFORMATION
  Report Type: Other
  Country: US (occurrence: None)
  Receive Date: 20220608
  Receipt Date: 20220608
  Transmission Date: 20220720
  Serious: No
  Sender: FDA-Public Use
  Company Number: US-ROCHE-2919819

PATIENT
  Age: 76 Year
  Sex: Female

DRUGS (5)
  1. TOCILIZUMAB [Suspect]
     Active Substance: TOCILIZUMAB
     Indication: COVID-19
     Route: 065
  2. REMDESIVIR [Concomitant]
     Active Substance: REMDESIVIR
     Indication: COVID-19
  3. METHYLPREDNISOLONE [Concomitant]
     Active Substance: METHYLPREDNISOLONE
     Route: 042
  4. BUDESONIDE [Concomitant]
     Active Substance: BUDESONIDE
  5. MICAFUNGIN [Concomitant]
     Active Substance: MICAFUNGIN

REACTIONS (2)
  - Off label use [Unknown]
  - No adverse event [Unknown]
